FAERS Safety Report 19938666 (Version 1)
Quarter: 2021Q4

REPORT INFORMATION
  Report Type: Spontaneous
  Country: DE (occurrence: DE)
  Receive Date: 20211011
  Receipt Date: 20211011
  Transmission Date: 20220303
  Serious: Yes (Other)
  Sender: FDA-Public Use
  Company Number: DE-CELLTRION INC.-2021DE011369

PATIENT

DRUGS (10)
  1. TRASTUZUMAB [Suspect]
     Active Substance: TRASTUZUMAB
     Indication: Vaginal adenocarcinoma
     Dosage: 4 MG/KG
     Route: 065
  2. TRASTUZUMAB [Suspect]
     Active Substance: TRASTUZUMAB
     Dosage: 2 MG/M2 EVERY 3 WEEKS (THREE CYCLES)
  3. DENOSUMAB [Suspect]
     Active Substance: DENOSUMAB
     Indication: Metastases to bone
     Dosage: 120 MG EVERY 4 WEEKS; (THREE CYCLES)
     Route: 058
  4. DENOSUMAB [Suspect]
     Active Substance: DENOSUMAB
     Indication: Vaginal adenocarcinoma
  5. XGEVA [Suspect]
     Active Substance: DENOSUMAB
     Indication: Metastases to bone
     Dosage: 120 MG, Q4WEEKS
     Route: 058
  6. PACLITAXEL [Concomitant]
     Active Substance: PACLITAXEL
     Indication: Vaginal adenocarcinoma
     Dosage: 80 MG/M2 WEEKLY; (THREE CYCLES)
  7. CARBOPLATIN [Concomitant]
     Active Substance: CARBOPLATIN
  8. PEMBROLIZUMAB [Concomitant]
     Active Substance: PEMBROLIZUMAB
     Dosage: 200 MG, EVERY 3 WEEKS (Q3WK)
  9. BEVACIZUMAB [Concomitant]
     Active Substance: BEVACIZUMAB
     Dosage: 15 MILLIGRAMS PER KILOGRAMS
  10. CISPLATIN [Concomitant]
     Active Substance: CISPLATIN
     Dosage: 50 MILLIGRAMS PER KILOGRAMS

REACTIONS (4)
  - Neoplasm progression [Recovering/Resolving]
  - Acquired gene mutation [Unknown]
  - Vaginal adenocarcinoma [Recovering/Resolving]
  - Off label use [Unknown]
